FAERS Safety Report 8352100-1 (Version None)
Quarter: 2012Q2

REPORT INFORMATION
  Report Type: 
  Country: None (occurrence: None)
  Receive Date: 20120510
  Receipt Date: 20120510
  Transmission Date: 20120825
  Serious: Yes (Other)
  Sender: FDA-Public Use
  Company Number: None

PATIENT
  Age: 14 Year
  Sex: Male

DRUGS (1)
  1. DERMAMEDICS COMPLEXION REPAIR TOPICAL REHYDRATING EMULSION DERMAMEDICS [Suspect]
     Indication: ACNE
     Dosage: 1/2 DIME SIZE 1X
     Dates: start: 20120402

REACTIONS (2)
  - ERYTHEMA [None]
  - APPLICATION SITE PAIN [None]
